FAERS Safety Report 4840284-9 (Version None)
Quarter: 2005Q4

REPORT INFORMATION
  Report Type: 
  Country: None (occurrence: None)
  Receive Date: 20051031
  Receipt Date: 20050701
  Transmission Date: 20060501
  Serious: No
  Sender: FDA-Public Use
  Company Number: 200515532US

PATIENT
  Sex: Female

DRUGS (3)
  1. KETEK [Suspect]
     Indication: LYME DISEASE
     Dosage: 800 MG PO
     Route: 048
  2. BACTRIM [Concomitant]
  3. CLAVULANATE POTASSIUM, AMOXICILLIN TRIHYDRATE (AUGMENTIN) [Concomitant]

REACTIONS (2)
  - ARTHRALGIA [None]
  - MYALGIA [None]
